FAERS Safety Report 5735204-9 (Version None)
Quarter: 2008Q2

REPORT INFORMATION
  Report Type: 
  Country: None (occurrence: None)
  Receive Date: 20080512
  Receipt Date: 20080208
  Transmission Date: 20081010
  Serious: No
  Sender: FDA-Public Use
  Company Number: US-ABBOTT-08P-163-0437349-00

PATIENT
  Age: 40 Year
  Sex: Male

DRUGS (5)
  1. KALETRA [Suspect]
     Indication: HIV INFECTION
     Route: 048
     Dates: start: 20060201
  2. KALETRA [Suspect]
     Indication: HIV INFECTION
     Dates: start: 20020201, end: 20060201
  3. ATORVASTATIN CALCIUM [Suspect]
     Indication: DYSLIPIDAEMIA
     Dates: start: 20070101, end: 20080121
  4. ZALCITABINE [Concomitant]
     Indication: HIV INFECTION
     Route: 048
     Dates: end: 20070801
  5. ABACAVIR SULFATE [Concomitant]
     Indication: HIV INFECTION
     Route: 048
     Dates: start: 20070801

REACTIONS (5)
  - BLOOD CHOLESTEROL INCREASED [None]
  - CUSHINGOID [None]
  - LIPOHYPERTROPHY [None]
  - MUSCULAR WEAKNESS [None]
  - MYOPATHY [None]
